FAERS Safety Report 6664727-3 (Version None)
Quarter: 2010Q1

REPORT INFORMATION
  Report Type: 
  Country: None (occurrence: None)
  Receive Date: 20100330
  Receipt Date: 20100318
  Transmission Date: 20100710
  Serious: Yes (Other)
  Sender: FDA-Public Use
  Company Number: 230083J10ARG

PATIENT
  Age: 42 Year
  Sex: Male

DRUGS (1)
  1. REBIF [Suspect]
     Dates: start: 20000101

REACTIONS (5)
  - FAMILY STRESS [None]
  - HYPERTHYROIDISM [None]
  - HYPOCALCAEMIA [None]
  - HYPOTHYROIDISM [None]
  - MOTOR DYSFUNCTION [None]
